FAERS Safety Report 4901500-8 (Version None)
Quarter: 2006Q1

REPORT INFORMATION
  Report Type: 
  Country: None (occurrence: None)
  Receive Date: 20060201
  Receipt Date: 20060201
  Transmission Date: 20060701
  Serious: Yes (Hospitalization)
  Sender: FDA-Public Use
  Company Number: None

PATIENT
  Age: 91 Year
  Sex: Female
  Weight: 56.246 kg

DRUGS (7)
  1. XELODA [Suspect]
     Indication: COLON CANCER METASTATIC
     Dosage: 1650MG  BID  X 14 DAYS
     Dates: start: 20051020, end: 20051215
  2. BEVACIZUMAB [Suspect]
     Indication: COLON CANCER METASTATIC
     Dosage: 437 MG  Q 3 WK  IV
     Route: 042
     Dates: start: 20051020, end: 20051201
  3. PREDNISONE [Concomitant]
  4. DIGOXIN [Concomitant]
  5. MICARDIS [Concomitant]
  6. LASIX [Concomitant]
  7. METOPROLOL [Concomitant]

REACTIONS (9)
  - ABDOMINAL PAIN [None]
  - ASTHENIA [None]
  - ATRIAL FIBRILLATION [None]
  - BLOOD ELECTROLYTES ABNORMAL [None]
  - DEHYDRATION [None]
  - DIARRHOEA [None]
  - NAUSEA [None]
  - SKIN TURGOR DECREASED [None]
  - VOMITING [None]
